FAERS Safety Report 14479745 (Version 3)
Quarter: 2018Q2

REPORT INFORMATION
  Report Type: Report from Study
  Country: GB (occurrence: GB)
  Receive Date: 20180202
  Receipt Date: 20180618
  Transmission Date: 20180711
  Serious: Yes (Hospitalization)
  Sender: FDA-Public Use
  Company Number: PHHY2017GB147287

PATIENT
  Age: 20 Year
  Sex: Female
  Weight: 50 kg

DRUGS (4)
  1. TAFINLAR [Suspect]
     Active Substance: DABRAFENIB MESYLATE
     Indication: ASTROCYTOMA MALIGNANT
     Dosage: 300 MG, QD
     Route: 048
     Dates: start: 20170801, end: 20170812
  2. TRAMETINIB [Suspect]
     Active Substance: TRAMETINIB
     Dosage: 2 MG, QD
     Route: 048
     Dates: end: 20180122
  3. TRAMETINIB [Suspect]
     Active Substance: TRAMETINIB
     Indication: ASTROCYTOMA MALIGNANT
     Dosage: 2 MG, QD
     Route: 048
     Dates: start: 20170801, end: 20170812
  4. TAFINLAR [Suspect]
     Active Substance: DABRAFENIB MESYLATE
     Dosage: 300 MG, QD
     Route: 048
     Dates: end: 20180122

REACTIONS (6)
  - Abdominal pain [Recovered/Resolved]
  - Dermatitis acneiform [Unknown]
  - Headache [Unknown]
  - Pyrexia [Unknown]
  - Rash vesicular [Recovered/Resolved]
  - Erythema nodosum [Unknown]

NARRATIVE: CASE EVENT DATE: 20170901
